FAERS Safety Report 18564143 (Version 1)
Quarter: 2020Q4

REPORT INFORMATION
  Report Type: Spontaneous
  Country: JP (occurrence: JP)
  Receive Date: 20201201
  Receipt Date: 20201201
  Transmission Date: 20210114
  Serious: No
  Sender: FDA-Public Use
  Company Number: JP-LUPIN PHARMACEUTICALS INC.-2020-07687

PATIENT
  Age: 33 Year
  Sex: Female
  Weight: 71.3 kg

DRUGS (9)
  1. METHYLPREDNISOLONE. [Suspect]
     Active Substance: METHYLPREDNISOLONE
     Indication: HYPOTHALAMO-PITUITARY DISORDER
     Dosage: 500 MILLIGRAM EVERY 3 DAY OF 3 CYCLES (PULSE TREATMENT)
     Route: 042
  2. LEVOTHYROXINE. [Concomitant]
     Active Substance: LEVOTHYROXINE
     Indication: HORMONE REPLACEMENT THERAPY
     Dosage: 75 MICROGRAM, UNK
     Route: 065
  3. MEDROXYPROGESTERONE [Concomitant]
     Active Substance: MEDROXYPROGESTERONE
     Indication: HORMONE REPLACEMENT THERAPY
     Dosage: UNK
     Route: 065
  4. DESMOPRESSIN ACETATE. [Concomitant]
     Active Substance: DESMOPRESSIN ACETATE
     Indication: HORMONE REPLACEMENT THERAPY
     Dosage: 120 MICROGRAM, UNK
     Route: 065
  5. HYDROCORTISONE. [Suspect]
     Active Substance: HYDROCORTISONE
     Indication: HORMONE REPLACEMENT THERAPY
     Dosage: 15 MILLIGRAM, UNK
     Route: 065
  6. PREDNISOLONE. [Suspect]
     Active Substance: PREDNISOLONE
     Indication: HYPOTHALAMO-PITUITARY DISORDER
     Dosage: 20 MILLIGRAM, UNK (GRADUALLY TAPERED AND WITHDREW 16 MONTHS AFTER THE INITIATION OF THE GLUCOCORTICO
     Route: 048
  7. ESTRADIOL. [Concomitant]
     Active Substance: ESTRADIOL
     Indication: HORMONE REPLACEMENT THERAPY
     Dosage: UNK
     Route: 065
  8. LIRAGLUTIDE [Concomitant]
     Active Substance: LIRAGLUTIDE
     Indication: PRODUCT USED FOR UNKNOWN INDICATION
     Dosage: 0.9 MILLIGRAM, UNK
     Route: 065
  9. SOMATROPIN. [Concomitant]
     Active Substance: SOMATROPIN
     Indication: HEPATIC ENZYME INCREASED
     Dosage: 0.2 MILLIGRAM, UNK
     Route: 065

REACTIONS (3)
  - Glucose tolerance impaired [Recovering/Resolving]
  - Hepatic steatosis [Recovering/Resolving]
  - Condition aggravated [Recovering/Resolving]
